FAERS Safety Report 18535248 (Version 1)
Quarter: 2020Q4

REPORT INFORMATION
  Report Type: Spontaneous
  Country: US (occurrence: US)
  Receive Date: 20201123
  Receipt Date: 20201123
  Transmission Date: 20210114
  Serious: No
  Sender: FDA-Public Use
  Company Number: US-ALKERMES INC.-ALK-2020-005185

PATIENT

DRUGS (1)
  1. VIVITROL [Suspect]
     Active Substance: NALTREXONE
     Indication: SCHIZOPHRENIA
     Dosage: 380 MILLIGRAM, QMO
     Route: 030

REACTIONS (2)
  - Injection site reaction [Unknown]
  - Off label use [Unknown]
